FAERS Safety Report 8206885-5 (Version None)
Quarter: 2012Q1

REPORT INFORMATION
  Report Type: 
  Country: None (occurrence: None)
  Receive Date: 20120308
  Receipt Date: 20120305
  Transmission Date: 20120608
  Serious: Yes (Hospitalization)
  Sender: FDA-Public Use
  Company Number: 2012031475

PATIENT
  Age: 15 Year
  Sex: Male

DRUGS (2)
  1. AERIUS (DESLORATADINE) INDICATION FOR USE WAS ALLERGY [Concomitant]
  2. VIVAGLOBIN [Suspect]
     Dosage: 40 ML QD
     Route: 058
     Dates: start: 20120302, end: 20120302

REACTIONS (3)
  - SENSORY LOSS [None]
  - PAIN [None]
  - HEADACHE [None]
